FAERS Safety Report 20048414 (Version 1)
Quarter: 2021Q4

REPORT INFORMATION
  Report Type: Spontaneous
  Country: US (occurrence: None)
  Receive Date: 20211109
  Receipt Date: 20211109
  Transmission Date: 20220303
  Serious: Yes (Other)
  Sender: FDA-Public Use
  Company Number: None

PATIENT
  Age: 35 Year
  Sex: Female
  Weight: 80.55 kg

DRUGS (8)
  1. MONTELUKAST [Suspect]
     Active Substance: MONTELUKAST SODIUM
     Indication: Asthma
     Dosage: FREQUENCY : AT BEDTIME;?
     Route: 048
     Dates: start: 20211101, end: 20211108
  2. MONTELUKAST [Suspect]
     Active Substance: MONTELUKAST SODIUM
     Indication: Hypersensitivity
  3. FLOVENT [Concomitant]
     Active Substance: FLUTICASONE PROPIONATE
  4. PREGABALIN [Concomitant]
     Active Substance: PREGABALIN
  5. ATIVAN [Concomitant]
     Active Substance: LORAZEPAM
  6. VITAMIN C [Concomitant]
     Active Substance: ASCORBIC ACID
  7. VITAMIN D [Concomitant]
     Active Substance: VITAMIN D NOS
  8. ZINC [Concomitant]
     Active Substance: ZINC

REACTIONS (3)
  - Chest discomfort [None]
  - Asthma [None]
  - Adverse event [None]

NARRATIVE: CASE EVENT DATE: 20211108
